FAERS Safety Report 6814535-5 (Version None)
Quarter: 2010Q2

REPORT INFORMATION
  Report Type: 
  Country: None (occurrence: None)
  Receive Date: 20100629
  Receipt Date: 20100621
  Transmission Date: 20101027
  Serious: Yes (Death, Hospitalization)
  Sender: FDA-Public Use
  Company Number: 2010SP034645

PATIENT
  Age: 27 Year
  Sex: Female

DRUGS (1)
  1. NUVARING [Suspect]
     Indication: DRUG USE FOR UNKNOWN INDICATION
     Dates: start: 20080401, end: 20080620

REACTIONS (6)
  - CEREBRAL HAEMATOMA [None]
  - CONVULSION [None]
  - DISEASE COMPLICATION [None]
  - MENTAL STATUS CHANGES [None]
  - MULTIPLE INJURIES [None]
  - SUBARACHNOID HAEMORRHAGE [None]
